FAERS Safety Report 10687673 (Version 1)
Quarter: 2015Q1

REPORT INFORMATION
  Report Type: Spontaneous
  Country: TW (occurrence: TW)
  Receive Date: 20150102
  Receipt Date: 20150102
  Transmission Date: 20150720
  Serious: Yes (Hospitalization)
  Sender: FDA-Public Use
  Company Number: TW-SA-2014SA178334

PATIENT
  Age: 82 Year
  Sex: Male

DRUGS (1)
  1. JEVTANA [Suspect]
     Active Substance: CABAZITAXEL
     Route: 065

REACTIONS (1)
  - Extravasation [Recovered/Resolved]

NARRATIVE: CASE EVENT DATE: 20141222
